FAERS Safety Report 9548942 (Version 1)
Quarter: 2013Q3

REPORT INFORMATION
  Report Type: Spontaneous
  Country: US (occurrence: None)
  Receive Date: 20130724
  Receipt Date: 20130724
  Transmission Date: 20140515
  Serious: Yes (Life-Threatening)
  Sender: FDA-Public Use
  Company Number: PHEH2012US021325

PATIENT
  Age: 43 Year
  Sex: Male
  Weight: 113.4 kg

DRUGS (2)
  1. FANAPT [Suspect]
     Route: 048
     Dates: start: 20121015, end: 20121018
  2. TOPAMAX (TOPIRAMATE) [Concomitant]

REACTIONS (1)
  - Priapism [None]
